FAERS Safety Report 14741154 (Version 1)
Quarter: 2018Q2

REPORT INFORMATION
  Report Type: Spontaneous
  Country: US (occurrence: US)
  Receive Date: 20180404
  Receipt Date: 20180404
  Transmission Date: 20180711
  Serious: Yes (Other)
  Sender: FDA-Public Use
  Company Number: None

PATIENT
  Age: 69 Year
  Sex: Male
  Weight: 112.5 kg

DRUGS (1)
  1. AMLODOPINE BESYLATE 5 MG. [Suspect]
     Active Substance: AMLODIPINE BESYLATE
     Indication: HYPERTENSION
     Dosage: ?          OTHER STRENGTH:1 TABLET;QUANTITY:1 DF DOSAGE FORM;?
     Route: 048
     Dates: start: 20180330, end: 20180404

REACTIONS (3)
  - Product quality issue [None]
  - Product contamination [None]
  - Hypertension [None]

NARRATIVE: CASE EVENT DATE: 20180402
